FAERS Safety Report 4353728-6 (Version None)
Quarter: 2004Q2

REPORT INFORMATION
  Report Type: 
  Country: None (occurrence: None)
  Receive Date: 20040430
  Receipt Date: 20031029
  Transmission Date: 20050107
  Serious: Yes (Hospitalization)
  Sender: FDA-Public Use
  Company Number: US046669

PATIENT
  Age: 63 Year
  Sex: Male

DRUGS (1)
  1. EPOGEN [Suspect]
     Indication: RENAL FAILURE CHRONIC
     Dosage: 1000 U, 3 TIMES/WK, SC
     Route: 058
     Dates: start: 20010901

REACTIONS (1)
  - THERAPEUTIC RESPONSE DECREASED [None]
